FAERS Safety Report 9166320 (Version 2)
Quarter: 2013Q1

REPORT INFORMATION
  Report Type: Spontaneous
  Country: IT (occurrence: IT)
  Receive Date: 20130315
  Receipt Date: 20130325
  Transmission Date: 20140127
  Serious: Yes (Hospitalization)
  Sender: FDA-Public Use
  Company Number: IT-ASTRAZENECA-2013SE15889

PATIENT
  Age: 2515 Week
  Sex: Male

DRUGS (1)
  1. LUCEN [Suspect]
     Indication: ABDOMINAL PAIN UPPER
     Route: 048
     Dates: start: 20130301, end: 20130303

REACTIONS (2)
  - Hypertensive crisis [Recovered/Resolved]
  - Headache [Recovered/Resolved]
